FAERS Safety Report 6586186-1 (Version None)
Quarter: 2010Q1

REPORT INFORMATION
  Report Type: 
  Country: None (occurrence: None)
  Receive Date: 20100216
  Receipt Date: 20100216
  Transmission Date: 20100710
  Serious: Yes (Death, Hospitalization)
  Sender: FDA-Public Use
  Company Number: None

PATIENT
  Age: 73 Year
  Sex: Male
  Weight: 101.1521 kg

DRUGS (2)
  1. TAXOTERE [Suspect]
     Indication: HEPATIC NEOPLASM MALIGNANT NON-RESECTABLE
     Dosage: 300MG/M2 IV WEEKLY D1, D8, D15: INRAVENOUS (NOT OTHERWISE SPECIFIED)
     Route: 042
     Dates: start: 20091008, end: 20100121
  2. TARCEVA [Suspect]
     Indication: HEPATIC NEOPLASM MALIGNANT NON-RESECTABLE
     Dosage: 150MG PO DAILY DAYS 2-7, 9-14, 16-28: ORAL
     Route: 048
     Dates: start: 20091008, end: 20100125

REACTIONS (2)
  - GENERAL PHYSICAL HEALTH DETERIORATION [None]
  - PNEUMONIA [None]
